FAERS Safety Report 7335453-2 (Version None)
Quarter: 2011Q1

REPORT INFORMATION
  Report Type: 
  Country: None (occurrence: None)
  Receive Date: 20110307
  Receipt Date: 20110302
  Transmission Date: 20110831
  Serious: Yes (Other)
  Sender: FDA-Public Use
  Company Number: GB-BRISTOL-MYERS SQUIBB COMPANY-15581796

PATIENT
  Age: 54 Year
  Sex: Male
  Weight: 68 kg

DRUGS (4)
  1. CITALOPRAM [Concomitant]
  2. NYSTATIN [Suspect]
     Indication: ORAL CANDIDIASIS
     Dosage: 100,000 UNITS.
     Route: 048
     Dates: start: 20110203, end: 20110203
  3. COD LIVER OIL [Concomitant]
  4. MULTI-VITAMIN [Concomitant]

REACTIONS (2)
  - BLISTER [None]
  - OEDEMA PERIPHERAL [None]
